FAERS Safety Report 25904327 (Version 1)
Quarter: 2025Q4

REPORT INFORMATION
  Report Type: Report from Study
  Country: CA (occurrence: CA)
  Receive Date: 20251010
  Receipt Date: 20251010
  Transmission Date: 20260117
  Serious: Yes (Death)
  Sender: ABBVIE
  Company Number: CA-ABBVIE-6497732

PATIENT
  Age: 41 Year
  Sex: Male

DRUGS (1)
  1. LUPRON [Suspect]
     Active Substance: LEUPROLIDE ACETATE
     Indication: Salivary gland cancer
     Dosage: FORM STRENGTH: 22.5 MILLIGRAM, DOSE FORM: PRE-FILLED SYRINGE
     Route: 030
     Dates: start: 20220505

REACTIONS (1)
  - Death [Fatal]

NARRATIVE: CASE EVENT DATE: 20230811
